FAERS Safety Report 14133085 (Version 1)
Quarter: 2017Q4

REPORT INFORMATION
  Report Type: Other
  Country: US (occurrence: US)
  Receive Date: 20171027
  Receipt Date: 20171027
  Transmission Date: 20180321
  Serious: Yes (Other)
  Sender: FDA-Public Use
  Company Number: US-VELOXIS PHARMACEUTICALS-2031659

PATIENT
  Sex: Female

DRUGS (2)
  1. PREDNISONE. [Suspect]
     Active Substance: PREDNISONE
  2. ENVARSUS XR [Suspect]
     Active Substance: TACROLIMUS
     Indication: LIVER TRANSPLANT

REACTIONS (7)
  - Post transplant lymphoproliferative disorder [Unknown]
  - Transplant rejection [Unknown]
  - Eosinophilia [Unknown]
  - Intentional product use issue [Unknown]
  - Gastroenteritis eosinophilic [Unknown]
  - Epstein-Barr virus infection [Unknown]
  - Hypoalbuminaemia [Unknown]
